FAERS Safety Report 6185341-2 (Version None)
Quarter: 2009Q2

REPORT INFORMATION
  Report Type: 
  Country: None (occurrence: None)
  Receive Date: 20090511
  Receipt Date: 20090408
  Transmission Date: 20091009
  Serious: No
  Sender: FDA-Public Use
  Company Number: US-BAYER-200911154BCC

PATIENT
  Age: 34 Year
  Sex: Female

DRUGS (1)
  1. ALEVE [Suspect]
     Indication: INTERVERTEBRAL DISC PROTRUSION
     Dosage: TOTAL DAILY DOSE: 220 MG  UNIT DOSE: 220 MG
     Route: 048
     Dates: start: 20081001

REACTIONS (4)
  - DERMATITIS CONTACT [None]
  - ERYTHEMA [None]
  - PRURITUS [None]
  - SWELLING FACE [None]
